FAERS Safety Report 12565913 (Version 2)
Quarter: 2016Q3

REPORT INFORMATION
  Report Type: Spontaneous
  Country: DE (occurrence: DE)
  Receive Date: 20160718
  Receipt Date: 20160722
  Transmission Date: 20161109
  Serious: Yes (Other)
  Sender: FDA-Public Use
  Company Number: DE-BAXALTA-2016BLT002807

PATIENT
  Age: 76 Year
  Sex: Male

DRUGS (14)
  1. PREDNISOLONE. [Concomitant]
     Active Substance: PREDNISOLONE
     Indication: INHIBITING ANTIBODIES
  2. OBIZUR [Suspect]
     Active Substance: ANTIHEMOPHILIC FACTOR PORCINE, B-DOMAIN TRUNCATED RECOMBINANT
     Dosage: 100 IU/KG, 1X A DAY
     Route: 065
     Dates: start: 20160426
  3. NOVOSEVEN [Suspect]
     Active Substance: COAGULATION FACTOR VIIA RECOMBINANT HUMAN
     Indication: PRODUCT USED FOR UNKNOWN INDICATION
     Dosage: UNK
     Route: 065
  4. PREDNISOLONE. [Concomitant]
     Active Substance: PREDNISOLONE
     Indication: IMMUNOSUPPRESSION
  5. RITUXIMAB [Concomitant]
     Active Substance: RITUXIMAB
     Indication: IMMUNOSUPPRESSION
  6. RITUXIMAB [Concomitant]
     Active Substance: RITUXIMAB
     Indication: INHIBITING ANTIBODIES
  7. OBIZUR [Suspect]
     Active Substance: ANTIHEMOPHILIC FACTOR PORCINE, B-DOMAIN TRUNCATED RECOMBINANT
     Indication: HAEMORRHAGE
     Dosage: 50 IU/KG, UNK
     Dates: start: 20160406
  8. OBIZUR [Suspect]
     Active Substance: ANTIHEMOPHILIC FACTOR PORCINE, B-DOMAIN TRUNCATED RECOMBINANT
     Dosage: UNK, IN WEEK 6
     Route: 065
  9. FACTOR VIII [Concomitant]
     Active Substance: ANTIHEMOPHILIC FACTOR HUMAN
     Indication: HAEMORRHAGIC DIATHESIS
  10. OBIZUR [Suspect]
     Active Substance: ANTIHEMOPHILIC FACTOR PORCINE, B-DOMAIN TRUNCATED RECOMBINANT
     Dosage: TWO TIMES IN WEEK 6
     Route: 065
  11. FACTOR VIIA, RECOMBINANT [Concomitant]
     Active Substance: COAGULATION FACTOR VIIA RECOMBINANT HUMAN
     Indication: PRODUCT USED FOR UNKNOWN INDICATION
     Dosage: UNK
  12. PLATELETS [Concomitant]
     Active Substance: HUMAN PLATELET, ALLOGENIC
     Indication: HAEMORRHAGIC DIATHESIS
  13. RED BLOOD CELLS [Concomitant]
     Active Substance: HUMAN RED BLOOD CELL
     Indication: HAEMORRHAGIC DIATHESIS
  14. HUMAN FACTOR VIII [Concomitant]
     Indication: HAEMOTHORAX
     Dosage: IN WEEK 6

REACTIONS (9)
  - Haemorrhage [Unknown]
  - Neutropenia [Unknown]
  - Drug effect decreased [Unknown]
  - Pneumonia [Unknown]
  - Renal failure [Unknown]
  - Intensive care unit acquired weakness [Unknown]
  - Condition aggravated [Unknown]
  - Cardiogenic shock [Unknown]
  - Haemothorax [Unknown]
